FAERS Safety Report 5596937-0 (Version None)
Quarter: 2007Q4

REPORT INFORMATION
  Report Type: 
  Country: None (occurrence: None)
  Receive Date: 20071220
  Receipt Date: 20070926
  Transmission Date: 20080405
  Serious: Yes (Other)
  Sender: FDA-Public Use
  Company Number: A03200705835

PATIENT
  Age: 75 Year
  Sex: Female
  Weight: 80.7403 kg

DRUGS (10)
  1. AMBIEN [Suspect]
     Indication: INSOMNIA
     Dosage: 6.25 MG ONCE - ORAL
     Route: 048
     Dates: start: 20070924, end: 20070925
  2. INSULIN GLARGINE [Concomitant]
  3. INSULIN LISPRO [Concomitant]
  4. FEXOFENADINE HYDROCHLORIDE [Concomitant]
  5. VALSARTAN [Concomitant]
  6. HYDROCHLOROTHIAZIDE [Concomitant]
  7. EZETIMIBE [Concomitant]
  8. CLOPIDOGREL BISULFATE [Concomitant]
  9. ESTRADIOL [Concomitant]
  10. GEMFIBROZIL [Concomitant]

REACTIONS (11)
  - AGITATION [None]
  - ANXIETY [None]
  - CHEST PAIN [None]
  - DISORIENTATION [None]
  - HANGOVER [None]
  - IRRITABILITY [None]
  - NAUSEA [None]
  - NIGHTMARE [None]
  - PANIC REACTION [None]
  - SOMNOLENCE [None]
  - VISION BLURRED [None]
